FAERS Safety Report 4920056-7 (Version None)
Quarter: 2006Q1

REPORT INFORMATION
  Report Type: 
  Country: None (occurrence: None)
  Receive Date: 20060217
  Receipt Date: 20060209
  Transmission Date: 20060701
  Serious: Yes (Death)
  Sender: FDA-Public Use
  Company Number: S06-USA-00506-01

PATIENT
  Age: 23 Year
  Sex: Male

DRUGS (3)
  1. LEXAPRO [Suspect]
     Indication: DEPRESSION
     Dosage: 10 MG QD PO
     Route: 048
     Dates: start: 20051023, end: 20051205
  2. COCAINE [Suspect]
     Dates: end: 20051205
  3. XANAX [Concomitant]

REACTIONS (7)
  - AGITATION [None]
  - BACK PAIN [None]
  - BODY TEMPERATURE INCREASED [None]
  - ERYTHEMA [None]
  - SEROTONIN SYNDROME [None]
  - VENTRICULAR FIBRILLATION [None]
  - VENTRICULAR TACHYCARDIA [None]
